FAERS Safety Report 23645921 (Version 1)
Quarter: 2024Q1

REPORT INFORMATION
  Report Type: Spontaneous
  Country: CA (occurrence: None)
  Receive Date: 20240319
  Receipt Date: 20240319
  Transmission Date: 20240409
  Serious: Yes (Other)
  Sender: FDA-Public Use
  Company Number: CA-ROCHE-3525886

PATIENT
  Age: 59 Year
  Sex: Male

DRUGS (1)
  1. RITUXIMAB [Suspect]
     Active Substance: RITUXIMAB
     Indication: Rheumatoid arthritis
     Route: 042

REACTIONS (7)
  - Cough [Unknown]
  - Fatigue [Unknown]
  - Headache [Unknown]
  - Illness [Unknown]
  - Pulmonary congestion [Unknown]
  - SARS-CoV-2 test positive [Unknown]
  - Secretion discharge [Unknown]
